FAERS Safety Report 5960558-8 (Version None)
Quarter: 2008Q4

REPORT INFORMATION
  Report Type: 
  Country: None (occurrence: None)
  Receive Date: 20081120
  Receipt Date: 20081112
  Transmission Date: 20090506
  Serious: Yes (Disabling)
  Sender: FDA-Public Use
  Company Number: FR-WATSON-2008-06018

PATIENT
  Sex: Female

DRUGS (1)
  1. TRELSTAR LA MIXJECT (WATSON LABORATORIES) [Suspect]
     Indication: ENDOMETRIOSIS
     Dosage: 11.25 MG, (1 IN 3 M)
     Route: 030
     Dates: start: 20070430

REACTIONS (10)
  - ANGIOEDEMA [None]
  - APHTHOUS STOMATITIS [None]
  - ARTHRALGIA [None]
  - BURNING SENSATION MUCOSAL [None]
  - DYSPNOEA [None]
  - FACE OEDEMA [None]
  - MALAISE [None]
  - MYALGIA [None]
  - PRURITUS [None]
  - RASH [None]
